FAERS Safety Report 6683038-3 (Version None)
Quarter: 2010Q2

REPORT INFORMATION
  Report Type: 
  Country: None (occurrence: None)
  Receive Date: 20100413
  Receipt Date: 20100329
  Transmission Date: 20101027
  Serious: Yes (Other)
  Sender: FDA-Public Use
  Company Number: AUR-APL-2010-00916

PATIENT
  Age: 40 Year
  Sex: Male

DRUGS (2)
  1. FINASTERIDE [Suspect]
     Indication: ALOPECIA
     Dates: start: 20080101
  2. AVODART [Suspect]
     Indication: ALOPECIA
     Dosage: 500 MCG-DAILY-ORAL
     Route: 048
     Dates: start: 20080101

REACTIONS (3)
  - DARK CIRCLES UNDER EYES [None]
  - DYSGEUSIA [None]
  - SKIN ATROPHY [None]
